FAERS Safety Report 4849421-3 (Version None)
Quarter: 2005Q4

REPORT INFORMATION
  Report Type: 
  Country: None (occurrence: None)
  Receive Date: 20051207
  Receipt Date: 20051128
  Transmission Date: 20060501
  Serious: Yes (Other)
  Sender: FDA-Public Use
  Company Number: 2005157234

PATIENT
  Age: 54 Year
  Sex: Male
  Weight: 90 kg

DRUGS (5)
  1. LYRICA [Suspect]
     Indication: COMPLEX REGIONAL PAIN SYNDROME
     Dosage: 150 MG (75 MG, 2 IN 1 D), ORAL
     Route: 048
     Dates: start: 20050301, end: 20050510
  2. NEURONTIN [Concomitant]
  3. PLAVIX [Concomitant]
  4. CRESTOR [Concomitant]
  5. SOTALOL HCL [Concomitant]

REACTIONS (6)
  - ANGER [None]
  - DEPERSONALISATION [None]
  - DISINHIBITION [None]
  - ECONOMIC PROBLEM [None]
  - MANIA [None]
  - SOCIAL PROBLEM [None]
